FAERS Safety Report 6089338-2 (Version None)
Quarter: 2009Q1

REPORT INFORMATION
  Report Type: 
  Country: None (occurrence: None)
  Receive Date: 20090224
  Receipt Date: 20090217
  Transmission Date: 20090719
  Serious: Yes (Other)
  Sender: FDA-Public Use
  Company Number: PHHY2009FR05839

PATIENT
  Sex: Female

DRUGS (5)
  1. FEMARA [Suspect]
     Indication: BREAST CANCER
  2. VALPROATE SODIUM [Concomitant]
  3. EBIXA [Concomitant]
     Indication: DEMENTIA ALZHEIMER'S TYPE
  4. LEVOTHYROX [Concomitant]
     Indication: HYPOTHYROIDISM
  5. MONICOR [Concomitant]
     Indication: ANGINA PECTORIS

REACTIONS (3)
  - DRY MOUTH [None]
  - DYSPHAGIA [None]
  - STOMATITIS [None]
